FAERS Safety Report 12711740 (Version 1)
Quarter: 2016Q3

REPORT INFORMATION
  Report Type: Other
  Country: US (occurrence: US)
  Receive Date: 20160902
  Receipt Date: 20160902
  Transmission Date: 20161109
  Serious: Yes (Hospitalization)
  Sender: FDA-Public Use
  Company Number: US-ENDO PHARMACEUTICALS INC-2016-005328

PATIENT
  Age: 62 Year
  Sex: Male

DRUGS (1)
  1. XIAFLEX [Suspect]
     Active Substance: COLLAGENASE CLOSTRIDIUM HISTOLYTICUM
     Indication: PEYRONIE^S DISEASE
     Route: 026

REACTIONS (5)
  - Ecchymosis [Recovered/Resolved]
  - Penile haematoma [Recovered/Resolved]
  - Penile pain [Recovered/Resolved]
  - Erectile dysfunction [Recovered/Resolved]
  - Penile swelling [Recovered/Resolved]
